FAERS Safety Report 4707130-5 (Version None)
Quarter: 2005Q3

REPORT INFORMATION
  Report Type: 
  Country: None (occurrence: None)
  Receive Date: 20050706
  Receipt Date: 20050322
  Transmission Date: 20060218
  Serious: Yes (Hospitalization)
  Sender: FDA-Public Use
  Company Number: US-ROCHE-399747

PATIENT
  Age: 34 Year
  Sex: Female
  Weight: 73.5 kg

DRUGS (1)
  1. ACCUTANE [Suspect]
     Route: 048
     Dates: start: 20001222, end: 20010501

REACTIONS (10)
  - ARTHRALGIA [None]
  - CHOLECYSTITIS INFECTIVE [None]
  - CROHN'S DISEASE [None]
  - ILEAL ULCER [None]
  - ILEITIS [None]
  - INFECTION [None]
  - LYMPHADENOPATHY [None]
  - OVARIAN CYST RUPTURED [None]
  - PYREXIA [None]
  - THERAPY NON-RESPONDER [None]
